FAERS Safety Report 7913791-X (Version None)
Quarter: 2011Q4

REPORT INFORMATION
  Report Type: 
  Country: None (occurrence: None)
  Receive Date: 20111115
  Receipt Date: 20111108
  Transmission Date: 20120403
  Serious: Yes (Hospitalization, Other)
  Sender: FDA-Public Use
  Company Number: US-PFIZER INC-2011186130

PATIENT
  Sex: Female
  Weight: 54.422 kg

DRUGS (36)
  1. IRON [Concomitant]
     Dosage: UNK
  2. INSULIN [Concomitant]
     Dosage: NPH, 12 UNITS BEFORE BREAKFAST, 10 UNITS BEFORE
     Dates: start: 20110601
  3. PNEUMOCOCCAL POLYSACCHARIDE VACCINE [Concomitant]
     Dosage: 0.5 ML, UNK
     Route: 030
     Dates: start: 20110617
  4. HYDROXYPROPYL METHYLCELLULOSE [Concomitant]
     Dosage: 0.5% SOLUTION 1 DROP IN BOTH EYES 3 TIMES A DAY
     Route: 047
  5. LANOLIN [Concomitant]
     Dosage: HYDROUS OPHTHALMIC OINTMENT DAILY AT BEDTIME
  6. FUROSEMIDE [Concomitant]
     Dosage: 30 MG, 4X/DAY Q6HRS
  7. DILAUDID [Concomitant]
     Dosage: 2 MG, AS NEEDED
  8. HYDROCORTISONE [Concomitant]
     Dosage: 50 MG, 3X/DAY Q8HRS
     Dates: start: 20110604
  9. ACETAMINOPHEN [Concomitant]
     Dosage: 650 UNK, UNK
  10. BENADRYL [Concomitant]
     Dosage: UNK, AS NEEDED
  11. ZANTAC [Concomitant]
     Dosage: 150 MG, 2X/DAY
  12. CENTRUM SILVER [Concomitant]
     Dosage: 1 DF, 1X/DAY
     Route: 048
  13. PANTOPRAZOLE [Concomitant]
     Dosage: EC 40 MG, 1X/DAY
     Route: 048
  14. LEVOPHED [Concomitant]
     Dosage: TITRATED TO SBP }95
  15. ZYVOX [Suspect]
     Indication: INFECTION
  16. ATROPINE [Concomitant]
     Dosage: 1 % OPHTHALMIC SOLUTION 1 GTT, 2X/DAY
  17. VERSED [Concomitant]
     Dosage: UNK
  18. PROCHLORPERAZINE [Concomitant]
     Dosage: 10 MG, 4X/DAY Q6HRS
  19. GENTAMICIN [Concomitant]
     Dosage: UNK
     Dates: end: 20110617
  20. AMLODIPINE [Concomitant]
     Dosage: 10 MG, 1X/DAY
     Route: 048
  21. PREDNISOLONE ACETATE [Concomitant]
     Dosage: 1% SUSPENSION 1 GTT, 1X/DAY IN BOTH EYES
     Route: 047
  22. MICAFUNGIN [Concomitant]
     Dosage: 100 MG, 1X/DAY Q24HRS
     Dates: start: 20110603, end: 20110606
  23. HEPARIN [Concomitant]
     Dosage: UNK
     Route: 042
  24. HYDRALAZINE [Concomitant]
     Dosage: 20 MG, AS NEEDED
  25. COMPAZINE [Concomitant]
     Dosage: UNK, AS NEEDED
  26. ZYVOX [Suspect]
     Indication: STAPHYLOCOCCAL INFECTION
  27. HUMULIN 70/30 [Concomitant]
     Indication: DIABETES MELLITUS
     Dosage: UNK
     Dates: end: 20110601
  28. BACITRACIN [Concomitant]
     Dosage: UNK
  29. DAPTOMYCIN [Concomitant]
     Dosage: 425 MG, 1X/DAY Q24HRS
     Dates: start: 20110521, end: 20110603
  30. ZYVOX [Suspect]
     Indication: SEPSIS
     Dosage: 600 MG, 2X/DAY
     Dates: start: 20110603, end: 20110701
  31. MEROPENEM [Concomitant]
     Dosage: 500 MG, 3X/DAY Q8HR
     Dates: start: 20110603
  32. FENTANYL [Concomitant]
     Dosage: UNK
     Route: 061
  33. WARFARIN [Concomitant]
     Dosage: 5 MG, UNK
  34. CIPROFLOXACIN [Concomitant]
     Dosage: 400 MG, 2X/DAY Q12HRS
     Dates: start: 20110602, end: 20110606
  35. SENNA [Concomitant]
     Dosage: UNK
  36. CEFTRIAXONE [Concomitant]
     Dosage: UNK
     Dates: start: 20110526, end: 20110601

REACTIONS (9)
  - DYSGEUSIA [None]
  - HEADACHE [None]
  - WEIGHT DECREASED [None]
  - VOMITING [None]
  - MALAISE [None]
  - APHAGIA [None]
  - ABDOMINAL PAIN UPPER [None]
  - ANAEMIA [None]
  - NAUSEA [None]
